FAERS Safety Report 18362683 (Version 6)
Quarter: 2020Q4

REPORT INFORMATION
  Report Type: Spontaneous
  Country: ES (occurrence: ES)
  Receive Date: 20201009
  Receipt Date: 20201202
  Transmission Date: 20210114
  Serious: Yes (Other)
  Sender: FDA-Public Use
  Company Number: ES-BEH-2020123342

PATIENT
  Age: 74 Year
  Sex: Male
  Weight: 77 kg

DRUGS (14)
  1. AMLODIPINO [AMLODIPINE] [Concomitant]
     Dosage: 10 MILLIGRAM, QD, C/24HOURS
     Route: 065
  2. DUODART [Concomitant]
     Active Substance: DUTASTERIDE\TAMSULOSIN
     Dosage: 1 COMP C/24 HRS
     Route: 065
  3. HIZENTRA [Suspect]
     Active Substance: HUMAN IMMUNOGLOBULIN G
     Dosage: UNK
     Route: 058
     Dates: start: 20200608, end: 20201009
  4. BETMIGA [Concomitant]
     Active Substance: MIRABEGRON
     Dosage: 30 MILLIGRAM, QD, C/24HOURS
     Route: 065
  5. DILIBAN [Concomitant]
     Active Substance: ACETAMINOPHEN\TRAMADOL HYDROCHLORIDE
     Dosage: 1 COMP C/12 HRS
     Route: 065
  6. HIZENTRA [Suspect]
     Active Substance: HUMAN IMMUNOGLOBULIN G
     Dosage: 90 MILLILITER, BIW, 2 INFUSION SITES, INFUSION RATE 60 ML/HR
     Route: 058
     Dates: start: 20200901, end: 20200909
  7. BISOPROLOL [Concomitant]
     Active Substance: BISOPROLOL
     Dosage: 5 MILLIGRAM, (1.5 COMP C/24 HRS)
     Route: 065
  8. HIZENTRA [Suspect]
     Active Substance: HUMAN IMMUNOGLOBULIN G
     Indication: CHRONIC INFLAMMATORY DEMYELINATING POLYRADICULONEUROPATHY
     Dosage: 36 GRAM, QW
     Route: 058
     Dates: start: 20200608
  9. HIZENTRA [Suspect]
     Active Substance: HUMAN IMMUNOGLOBULIN G
     Dosage: UNK
     Route: 058
     Dates: start: 20200826
  10. ADIRO [Concomitant]
     Active Substance: ASPIRIN
     Dosage: 100 MILLIGRAM, QD, C/24HOURS
     Route: 065
  11. DULOXETINA STADA GENERICOS [Concomitant]
     Dosage: 1 COMP C/24 HRS
  12. IBUPROFENO [Concomitant]
     Active Substance: IBUPROFEN
     Dosage: UNK, PRN
  13. HIZENTRA [Suspect]
     Active Substance: HUMAN IMMUNOGLOBULIN G
     Dosage: UNK
     Route: 058
     Dates: start: 20200930
  14. FERRO-GRADUMET [FERROUS SULFATE] [Concomitant]
     Dosage: 1 COMP C/24 HRS
     Route: 065

REACTIONS (6)
  - Wound [Recovered/Resolved]
  - Injury [Recovered/Resolved]
  - Infusion site necrosis [Recovered/Resolved]
  - Infusion site injury [Recovered/Resolved]
  - Infusion site erythema [Recovered/Resolved]
  - Infusion site swelling [Recovered/Resolved]

NARRATIVE: CASE EVENT DATE: 20200902
